FAERS Safety Report 14166343 (Version 1)
Quarter: 2017Q4

REPORT INFORMATION
  Report Type: Spontaneous
  Country: DE (occurrence: DE)
  Receive Date: 20171107
  Receipt Date: 20171107
  Transmission Date: 20180321
  Serious: Yes (Life-Threatening)
  Sender: FDA-Public Use
  Company Number: DE-TEVA-821709GER

PATIENT
  Age: 44 Year
  Sex: Male
  Weight: 112 kg

DRUGS (1)
  1. CINQAERO 10 MG/ML KONZENTRAT ZUR HERSTELLUNG EINER INFUSIONSLOESUNG [Suspect]
     Active Substance: RESLIZUMAB
     Indication: ASTHMA
     Dosage: 300 MG ALL 4 WEEKS
     Route: 042
     Dates: start: 20170410, end: 20171020

REACTIONS (5)
  - Metastases to liver [Not Recovered/Not Resolved]
  - Metastases to central nervous system [Not Recovered/Not Resolved]
  - Metastases to bone [Not Recovered/Not Resolved]
  - Metastases to spleen [Not Recovered/Not Resolved]
  - Metastases to lung [Not Recovered/Not Resolved]

NARRATIVE: CASE EVENT DATE: 20171022
